FAERS Safety Report 18526318 (Version 1)
Quarter: 2020Q4

REPORT INFORMATION
  Report Type: Spontaneous
  Country: JP (occurrence: JP)
  Receive Date: 20201120
  Receipt Date: 20201120
  Transmission Date: 20210114
  Serious: Yes (Hospitalization)
  Sender: FDA-Public Use
  Company Number: JP-GLAXOSMITHKLINE-JP2020JPN226891

PATIENT
  Age: 8 Decade
  Sex: Female
  Weight: 42.6 kg

DRUGS (2)
  1. VALACICLOVIR HYDROCHLORIDE [Suspect]
     Active Substance: VALACYCLOVIR HYDROCHLORIDE
     Indication: HERPES ZOSTER
     Dosage: 250 MG, QD
     Route: 048
  2. VALACICLOVIR HYDROCHLORIDE [Suspect]
     Active Substance: VALACYCLOVIR HYDROCHLORIDE
     Dosage: 250 MG, ON THE DAY OF DIALYSIS
     Route: 048

REACTIONS (4)
  - Gait disturbance [Unknown]
  - Tremor [Unknown]
  - Hypoaesthesia [Unknown]
  - Dyslalia [Unknown]
